FAERS Safety Report 9679975 (Version 2)
Quarter: 2013Q4

REPORT INFORMATION
  Report Type: Report from Study
  Country: US (occurrence: US)
  Receive Date: 20131110
  Receipt Date: 20131110
  Transmission Date: 20140711
  Serious: Yes (Other)
  Sender: FDA-Public Use
  Company Number: PHEH2013US013720

PATIENT
  Sex: Male

DRUGS (2)
  1. GILENYA [Suspect]
     Indication: MULTIPLE SCLEROSIS
     Dosage: 0.5 MG, QD
     Route: 048
     Dates: start: 20130525, end: 20130624
  2. MIRALAX [Concomitant]

REACTIONS (3)
  - Confusional state [Recovered/Resolved]
  - Nephrolithiasis [Unknown]
  - Abdominal pain lower [Not Recovered/Not Resolved]
